FAERS Safety Report 16957080 (Version 3)
Quarter: 2019Q4

REPORT INFORMATION
  Report Type: Report from Study
  Country: None (occurrence: CH)
  Receive Date: 20191024
  Receipt Date: 20191115
  Transmission Date: 20200122
  Serious: Yes (Hospitalization)
  Sender: FDA-Public Use
  Company Number: CH-ABBVIE-19K-151-2972617-00

PATIENT
  Age: 55 Year
  Sex: Female

DRUGS (4)
  1. DUODOPA [Suspect]
     Active Substance: CARBIDOPA\LEVODOPA
     Dosage: MD 3ML, CRD 3.1 ML/H, CRN 1.4ML/H, ED 0.8ML 24H THERAPY
     Route: 050
     Dates: start: 20190212, end: 20190702
  2. DUODOPA [Suspect]
     Active Substance: CARBIDOPA\LEVODOPA
     Indication: PARKINSON^S DISEASE
     Route: 050
     Dates: start: 20170321, end: 20190212
  3. TEMESTA [Concomitant]
     Indication: PRODUCT USED FOR UNKNOWN INDICATION
     Dosage: UPTO 10 TABLETS PER DAY
  4. DUODOPA [Suspect]
     Active Substance: CARBIDOPA\LEVODOPA
     Dosage: MD 3ML, CRD 3.4 ML/H, CRN 1.4ML/H, ED 1.0ML 24H THERAPY
     Route: 050
     Dates: start: 20190702

REACTIONS (4)
  - Vomiting [Recovered/Resolved]
  - Device deployment issue [Recovered/Resolved]
  - Device leakage [Not Recovered/Not Resolved]
  - Nausea [Not Recovered/Not Resolved]

NARRATIVE: CASE EVENT DATE: 201910
